FAERS Safety Report 9583440 (Version 1)
Quarter: 2013Q4

REPORT INFORMATION
  Report Type: Spontaneous
  Country: US (occurrence: US)
  Receive Date: 20131002
  Receipt Date: 20131002
  Transmission Date: 20140711
  Serious: No
  Sender: FDA-Public Use
  Company Number: US-AMGEN-USASP2013046958

PATIENT
  Age: 56 Year
  Sex: Female
  Weight: 63.04 kg

DRUGS (11)
  1. ENBREL [Suspect]
     Indication: PRODUCT USED FOR UNKNOWN INDICATION
     Dosage: 50 MG, QWK
     Route: 058
  2. ORENCIA [Concomitant]
     Dosage: 125 MG, UNK
  3. CELEBREX [Concomitant]
     Dosage: 400 MG, UNK
  4. PREDNISONE [Concomitant]
     Dosage: 2.5 MG, UNK
  5. DEXILANT [Concomitant]
     Dosage: 60 MG, UNK
  6. NASONEX [Concomitant]
     Dosage: 50 MUG, UNK
  7. PLAQUENIL                          /00072602/ [Concomitant]
     Dosage: 200 MG, UNK
  8. VITAMIN D                          /00107901/ [Concomitant]
     Dosage: 400 UNIT, UNK
  9. VITAMIN C                          /00008001/ [Concomitant]
     Dosage: 500 MG, UNK
  10. VITAMIN B6 [Concomitant]
     Dosage: 250 MG, UNK
  11. VITAMIN B2                         /00154901/ [Concomitant]
     Dosage: 100 MG, UNK

REACTIONS (3)
  - Hypersensitivity [Recovered/Resolved]
  - Rash [Recovered/Resolved]
  - Injection site rash [Recovered/Resolved]
